FAERS Safety Report 15310717 (Version 2)
Quarter: 2018Q4

REPORT INFORMATION
  Report Type: Report from Study
  Country: IT (occurrence: IT)
  Receive Date: 20180823
  Receipt Date: 20181004
  Transmission Date: 20190204
  Serious: Yes (Hospitalization)
  Sender: FDA-Public Use
  Company Number: IT-PFIZER INC-2018333570

PATIENT
  Age: 24 Year
  Sex: Male

DRUGS (2)
  1. LORAZEPAM. [Suspect]
     Active Substance: LORAZEPAM
     Dosage: 20 DF, TOTAL
     Route: 048
     Dates: start: 20180710, end: 20180710
  2. QUETIAPINE. [Suspect]
     Active Substance: QUETIAPINE
     Dosage: 60 DF, TOTAL
     Route: 048
     Dates: start: 20180710, end: 20180710

REACTIONS (2)
  - Sopor [Recovered/Resolved]
  - Drug abuse [Recovered/Resolved]

NARRATIVE: CASE EVENT DATE: 20180710
